FAERS Safety Report 9594326 (Version 2)
Quarter: 2013Q4

REPORT INFORMATION
  Report Type: Spontaneous
  Country: US (occurrence: US)
  Receive Date: 20131004
  Receipt Date: 20131004
  Transmission Date: 20140711
  Serious: Yes (Other)
  Sender: FDA-Public Use
  Company Number: US-NAPPMUNDI-USA-2012-0091497

PATIENT
  Age: 50 Year
  Sex: Female
  Weight: 104.31 kg

DRUGS (5)
  1. BUTRANS [Suspect]
     Indication: FIBROMYALGIA
     Dosage: 20 MCG/HR, DAILY
     Dates: start: 2012
  2. BUTRANS [Suspect]
     Indication: PAIN MANAGEMENT
  3. VIIBRYD [Concomitant]
     Indication: PRODUCT USED FOR UNKNOWN INDICATION
     Dosage: UNK
     Dates: start: 2012
  4. NASONEX [Concomitant]
     Indication: PRODUCT USED FOR UNKNOWN INDICATION
  5. NEXIUM                             /01479302/ [Concomitant]
     Indication: PRODUCT USED FOR UNKNOWN INDICATION

REACTIONS (8)
  - Bronchitis [Not Recovered/Not Resolved]
  - Asthma [Unknown]
  - Drug withdrawal syndrome [Unknown]
  - Psychosomatic disease [Unknown]
  - Mood swings [Unknown]
  - Tremor [Unknown]
  - Pruritus [Unknown]
  - Thinking abnormal [Unknown]
